FAERS Safety Report 23912498 (Version 1)
Quarter: 2024Q2

REPORT INFORMATION
  Report Type: Spontaneous
  Country: US (occurrence: US)
  Receive Date: 20240528
  Receipt Date: 20240528
  Transmission Date: 20240716
  Serious: No
  Sender: FDA-Public Use
  Company Number: US-HALEON-2177800

PATIENT
  Age: 22 Year
  Sex: Female

DRUGS (1)
  1. SENSODYNE SENSITIVITY AND GUM MINT [Suspect]
     Active Substance: STANNOUS FLUORIDE
     Indication: Hyperaesthesia teeth
     Dosage: AFTER ABOUT 3 DAYS OF BRUSHING TWICE A DAY

REACTIONS (8)
  - Rash [Unknown]
  - Lip swelling [Unknown]
  - Ulcer [Unknown]
  - Gingival swelling [Unknown]
  - Stomatitis [Unknown]
  - Oral disorder [Unknown]
  - Oral mucosal eruption [Unknown]
  - Tongue eruption [Unknown]
